FAERS Safety Report 8294131-6 (Version None)
Quarter: 2012Q2

REPORT INFORMATION
  Report Type: 
  Country: None (occurrence: None)
  Receive Date: 20120418
  Receipt Date: 20120410
  Transmission Date: 20120825
  Serious: Yes (Hospitalization)
  Sender: FDA-Public Use
  Company Number: PHHY2010CA83284

PATIENT
  Sex: Male

DRUGS (3)
  1. CHEMOTHERAPEUTICS [Concomitant]
     Dosage: UNK UKN, UNK
     Dates: start: 20110708
  2. ZOMETA [Suspect]
     Indication: PROSTATE CANCER METASTATIC
     Dosage: 4 MG, QMO
     Route: 042
     Dates: start: 20101124
  3. ZOMETA [Suspect]
     Dosage: 4 MG, EVERY 4 WEEKS
     Route: 042

REACTIONS (12)
  - PAIN [None]
  - ARTHRALGIA [None]
  - NASAL CONGESTION [None]
  - HEART RATE INCREASED [None]
  - OEDEMA PERIPHERAL [None]
  - INFECTION [None]
  - PAIN IN EXTREMITY [None]
  - NASOPHARYNGITIS [None]
  - BLOOD PRESSURE SYSTOLIC INCREASED [None]
  - BLOOD PRESSURE DECREASED [None]
  - PNEUMONIA [None]
  - DIARRHOEA [None]
